FAERS Safety Report 9944058 (Version 3)
Quarter: 2014Q1

REPORT INFORMATION
  Report Type: Spontaneous
  Country: US (occurrence: US)
  Receive Date: 20140303
  Receipt Date: 20140324
  Transmission Date: 20141002
  Serious: Yes (Hospitalization)
  Sender: FDA-Public Use
  Company Number: US-KOWA-2014S1000017

PATIENT
  Age: 69 None
  Sex: Male

DRUGS (14)
  1. LIVALO [Suspect]
     Route: 048
  2. ZETIA [Concomitant]
  3. ONGLYZA [Concomitant]
  4. ATENOLOL [Concomitant]
  5. SYNTHROID [Concomitant]
  6. LANTUS [Concomitant]
  7. NIACIN [Concomitant]
  8. FOLIC ACID [Concomitant]
  9. FUROSEMIDE [Concomitant]
  10. GLUMETZA [Concomitant]
  11. EFFIENT [Concomitant]
  12. ACTOS [Concomitant]
  13. LOVAZA [Concomitant]
  14. ASPIRIN [Concomitant]

REACTIONS (2)
  - Vascular stent insertion [Recovered/Resolved]
  - Treatment failure [Unknown]
